FAERS Safety Report 16793834 (Version 1)
Quarter: 2019Q3

REPORT INFORMATION
  Report Type: Spontaneous
  Country: SE (occurrence: SE)
  Receive Date: 20190911
  Receipt Date: 20190911
  Transmission Date: 20191005
  Serious: Yes (Hospitalization)
  Sender: FDA-Public Use
  Company Number: SE-TEVA-2019-SE-1103980

PATIENT
  Age: 14 Year
  Sex: Female
  Weight: 65 kg

DRUGS (2)
  1. PROMETHAZINE [Suspect]
     Active Substance: PROMETHAZINE HYDROCHLORIDE
     Dosage: 6 PROMETAZIN
     Route: 048
     Dates: start: 20190502, end: 20190502
  2. LERGIGAN (PROMETHAZINE HYDROCHLORIDE) [Suspect]
     Active Substance: PROMETHAZINE HYDROCHLORIDE
     Dosage: 625-750 MG
     Route: 048
     Dates: start: 20190502, end: 20190502

REACTIONS (8)
  - Anxiety [Unknown]
  - Akathisia [Unknown]
  - Opisthotonus [Unknown]
  - Intentional overdose [Unknown]
  - Vomiting [Unknown]
  - Consciousness fluctuating [Unknown]
  - Muscle twitching [Unknown]
  - Intentional self-injury [Unknown]

NARRATIVE: CASE EVENT DATE: 20190502
